FAERS Safety Report 5186801-3 (Version None)
Quarter: 2006Q4

REPORT INFORMATION
  Report Type: 
  Country: None (occurrence: None)
  Receive Date: 20061220
  Receipt Date: 20061030
  Transmission Date: 20070319
  Serious: No
  Sender: FDA-Public Use
  Company Number: US-AMGEN-KDL198817

PATIENT
  Sex: Female

DRUGS (2)
  1. ENBREL [Suspect]
     Indication: RHEUMATOID ARTHRITIS
     Route: 058
     Dates: start: 20050201
  2. PLAQUENIL [Concomitant]
     Dates: start: 20010101

REACTIONS (4)
  - PRURITUS [None]
  - SECRETION DISCHARGE [None]
  - SKIN SWELLING [None]
  - SOMNOLENCE [None]
